FAERS Safety Report 4802605-2 (Version None)
Quarter: 2005Q4

REPORT INFORMATION
  Report Type: 
  Country: None (occurrence: None)
  Receive Date: 20051014
  Receipt Date: 20050304
  Transmission Date: 20060501
  Serious: Yes (Hospitalization, Other)
  Sender: FDA-Public Use
  Company Number: 2005042057

PATIENT
  Age: 65 Year
  Sex: Female
  Weight: 78.0187 kg

DRUGS (9)
  1. NEURONTIN [Suspect]
     Indication: PAIN IN EXTREMITY
     Dosage: 300 MG (100 MG,3 IN 1 D)
     Dates: start: 20041201
  2. METFORMIN HCL [Concomitant]
  3. GLIMEPIRIDE [Concomitant]
  4. ALL OTHER THERAPEUTIC PRODUCTS (ALL OTHER THERAPEUTIC PRODUCTS) [Concomitant]
  5. ESCITALOPRAM OXALATE [Concomitant]
  6. LISINOPRIL [Concomitant]
  7. CLOPIDOGREL BISULFATE [Concomitant]
  8. ATENOLOL [Concomitant]
  9. ASPIRIN [Concomitant]

REACTIONS (2)
  - CEREBROVASCULAR ACCIDENT [None]
  - WALKING AID USER [None]
